FAERS Safety Report 21054846 (Version 2)
Quarter: 2022Q3

REPORT INFORMATION
  Report Type: Spontaneous
  Country: US (occurrence: US)
  Receive Date: 20220707
  Receipt Date: 20220805
  Transmission Date: 20221027
  Serious: Yes (Life-Threatening, Hospitalization)
  Sender: FDA-Public Use
  Company Number: US-TEVA-2022-US-2052436

PATIENT
  Age: 46 Year
  Sex: Male
  Weight: 95 kg

DRUGS (6)
  1. DEXMEDETOMIDINE [Suspect]
     Active Substance: DEXMEDETOMIDINE
     Indication: Sedative therapy
     Dosage: 33.6 UG/KG DAILY;
     Route: 065
  2. HYDROMORPHONE [Suspect]
     Active Substance: HYDROMORPHONE
     Indication: Sedative therapy
     Dosage: 288 MILLIGRAM DAILY;
     Route: 065
  3. DIAZEPAM [Suspect]
     Active Substance: DIAZEPAM
     Indication: Sedative therapy
     Dosage: 60 MILLIGRAM DAILY;
     Route: 048
  4. PROPOFOL [Suspect]
     Active Substance: PROPOFOL
     Indication: Sedative therapy
     Route: 065
  5. MIDAZOLAM [Suspect]
     Active Substance: MIDAZOLAM
     Indication: Sedative therapy
     Dosage: 360 MILLIGRAM DAILY;
     Route: 065
  6. KETAMINE [Suspect]
     Active Substance: KETAMINE
     Indication: Sedative therapy
     Dosage: 33.6 MG/KG DAILY;
     Route: 065

REACTIONS (1)
  - Drug ineffective [Unknown]
